FAERS Safety Report 26211669 (Version 2)
Quarter: 2025Q4

REPORT INFORMATION
  Report Type: Spontaneous
  Country: US (occurrence: US)
  Receive Date: 20251230
  Receipt Date: 20251230
  Transmission Date: 20260118
  Serious: Yes (Other)
  Sender: ROCHE
  Company Number: US-ROCHE-10000467914

PATIENT
  Age: 50 Year
  Sex: Male

DRUGS (5)
  1. RITUXIMAB [Suspect]
     Active Substance: RITUXIMAB
     Indication: Diffuse large B-cell lymphoma
     Dosage: DID FULL 8-10 MONTHS OF TREATMENT
     Route: 042
     Dates: start: 202404
  2. POLATUZUMAB VEDOTIN [Suspect]
     Active Substance: POLATUZUMAB VEDOTIN
     Indication: Diffuse large B-cell lymphoma
     Dosage: DID FULL 8-10 MONTHS OF TREATMENT
     Route: 042
     Dates: start: 202404
  3. CYCLOPHOSPHAMIDE [Suspect]
     Active Substance: CYCLOPHOSPHAMIDE
     Indication: Diffuse large B-cell lymphoma
     Dosage: DID FULL 8-10 MONTHS OF TREATMENT
     Route: 042
     Dates: start: 202404
  4. DOXORUBICIN [Suspect]
     Active Substance: DOXORUBICIN
     Indication: Diffuse large B-cell lymphoma
     Dosage: DID FULL 8-10 MONTHS OF TREATMENT
     Route: 042
     Dates: start: 202404
  5. PREDNISONE [Suspect]
     Active Substance: PREDNISONE
     Indication: Diffuse large B-cell lymphoma
     Dosage: DID FULL 8-10 MONTHS OF TREATMENT
     Route: 042
     Dates: start: 202404

REACTIONS (9)
  - Pulmonary mass [Recovered/Resolved]
  - Dysgeusia [Recovered/Resolved]
  - Fatigue [Recovered/Resolved]
  - Asthenia [Recovered/Resolved]
  - Alopecia [Recovered/Resolved]
  - Muscle disorder [Recovered/Resolved]
  - Hyperhidrosis [Unknown]
  - Nausea [Recovered/Resolved]
  - Neuropathy peripheral [Recovering/Resolving]

NARRATIVE: CASE EVENT DATE: 20240401
